FAERS Safety Report 14953310 (Version 2)
Quarter: 2018Q4

REPORT INFORMATION
  Report Type: Spontaneous
  Country: JP (occurrence: JP)
  Receive Date: 20180530
  Receipt Date: 20181113
  Transmission Date: 20190204
  Serious: Yes (Death, Hospitalization)
  Sender: FDA-Public Use
  Company Number: JP-BAYER-2018-097414

PATIENT
  Age: 73 Year
  Sex: Male

DRUGS (1)
  1. STIVARGA [Suspect]
     Active Substance: REGORAFENIB
     Indication: HEPATOCELLULAR CARCINOMA
     Dosage: 160 MG, QD, 3WEEKS ON 1 WEEK OFF
     Route: 048
     Dates: start: 20171113, end: 20180504

REACTIONS (3)
  - Physical deconditioning [Fatal]
  - Hepatocellular carcinoma [Fatal]
  - Liver carcinoma ruptured [Fatal]

NARRATIVE: CASE EVENT DATE: 2018
